FAERS Safety Report 20624401 (Version 4)
Quarter: 2023Q1

REPORT INFORMATION
  Report Type: Spontaneous
  Country: US (occurrence: US)
  Receive Date: 20220322
  Receipt Date: 20230123
  Transmission Date: 20230418
  Serious: Yes (Other)
  Sender: FDA-Public Use
  Company Number: US-SA-SAC20220321000116

PATIENT
  Age: 16 Year
  Sex: Male

DRUGS (4)
  1. ALPROLIX [Suspect]
     Active Substance: EFTRENONACOG ALFA
     Indication: Factor IX deficiency
     Dosage: INFUSE 5400 UNITS (4860 - 5940) SLOW IV PUSH EVERY 7 DAYS AND EVERY 24 HOURS AS NEEDED FOR BLEEDING
     Route: 042
     Dates: start: 202202
  2. ALPROLIX [Suspect]
     Active Substance: EFTRENONACOG ALFA
     Indication: Factor IX deficiency
     Dosage: INFUSE 5400 UNITS (4860 - 5940) SLOW IV PUSH EVERY 7 DAYS AND EVERY 24 HOURS AS NEEDED FOR BLEEDING
     Route: 042
     Dates: start: 202202
  3. ALPROLIX [Suspect]
     Active Substance: EFTRENONACOG ALFA
     Dosage: 5700 U, ONCE A WEEK AND AS NEEDED FOR BLEEDING
     Route: 042
     Dates: start: 20220126
  4. ALPROLIX [Suspect]
     Active Substance: EFTRENONACOG ALFA
     Dosage: 5700 U, ONCE A WEEK AND AS NEEDED FOR BLEEDING
     Route: 042
     Dates: start: 20220126

REACTIONS (2)
  - Haemorrhage [Not Recovered/Not Resolved]
  - Haemorrhage [Unknown]

NARRATIVE: CASE EVENT DATE: 20220101
